FAERS Safety Report 8823483 (Version 1)
Quarter: 2012Q4

REPORT INFORMATION
  Report Type: 
  Country: US (occurrence: US)
  Receive Date: 20121003
  Receipt Date: 20121003
  Transmission Date: 20130627
  Serious: Yes (Other)
  Sender: FDA-Public Use
  Company Number: US-MERCK-1210USA000868

PATIENT
  Age: 55 Year
  Sex: Female

DRUGS (22)
  1. JANUVIA [Suspect]
     Route: 048
  2. BUPROPION HYDROCHLORIDE [Suspect]
     Dosage: 300 mg, qd
     Route: 048
  3. VITAMINS (UNSPECIFIED) [Suspect]
     Route: 048
  4. GABAPENTIN [Suspect]
     Dosage: 2 DF, tid
     Route: 048
  5. VICODIN [Suspect]
     Route: 048
  6. ZANAFLEX [Suspect]
     Dosage: 2 mg, bid
     Route: 048
  7. DIOVAN [Suspect]
     Dosage: 160 mg, qd
     Route: 048
  8. LOZOL [Suspect]
     Dosage: 1.25 mg, qd
     Route: 048
  9. METFORMIN [Suspect]
     Dosage: 500 mg, qd
     Route: 048
  10. KLONOPIN [Suspect]
     Dosage: 0.5 mg, bid
     Route: 048
  11. PRILOSEC [Suspect]
     Dosage: 20 mg, bid
     Route: 048
  12. CARAFATE [Suspect]
     Dosage: 1 g, bid
  13. AGGRENOX [Suspect]
     Route: 048
  14. FLONASE [Suspect]
     Dosage: 50 Microgram, bid
     Route: 045
  15. FLOVENT [Suspect]
     Dosage: 110 Microgram, bid
     Route: 045
  16. VENTOLIN (ALBUTEROL SULFATE) [Suspect]
     Route: 045
  17. IMITREX (SUMATRIPTAN SUCCINATE) [Suspect]
     Dosage: 100 mg, prn
     Route: 048
  18. NITROLINGUAL [Suspect]
     Dosage: 0.4 mg, prn
     Route: 060
  19. EPIPEN [Suspect]
     Route: 062
  20. SIMVASTATIN [Suspect]
     Route: 048
  21. ZYRTEC [Suspect]
     Dosage: 10 mg, qd
     Route: 048
  22. LORTAB [Suspect]
     Route: 048

REACTIONS (2)
  - Memory impairment [Unknown]
  - Cardiac disorder [Unknown]
